FAERS Safety Report 10454044 (Version 2)
Quarter: 2016Q4

REPORT INFORMATION
  Report Type: Spontaneous
  Country: US (occurrence: US)
  Receive Date: 20140915
  Receipt Date: 20161202
  Transmission Date: 20170206
  Serious: No
  Sender: FDA-Public Use
  Company Number: US-JNJFOC-20140909962

PATIENT
  Sex: Male

DRUGS (3)
  1. RISPERDAL [Suspect]
     Active Substance: RISPERIDONE
     Indication: MOOD SWINGS
     Route: 048
     Dates: start: 2004
  2. RISPERDAL [Suspect]
     Active Substance: RISPERIDONE
     Indication: BIPOLAR DISORDER
     Route: 048
     Dates: start: 2004
  3. RISPERDAL [Suspect]
     Active Substance: RISPERIDONE
     Indication: AUTISM
     Route: 048
     Dates: start: 2004

REACTIONS (9)
  - Abnormal weight gain [Unknown]
  - Anger [Unknown]
  - Depression [Unknown]
  - Dyskinesia [Unknown]
  - Sleep disorder [Unknown]
  - Gynaecomastia [Unknown]
  - Abdominal pain upper [Unknown]
  - Anxiety [Unknown]
  - Crying [Unknown]
